FAERS Safety Report 19592188 (Version 1)
Quarter: 2021Q3

REPORT INFORMATION
  Report Type: Spontaneous
  Country: JP (occurrence: JP)
  Receive Date: 20210722
  Receipt Date: 20210722
  Transmission Date: 20211014
  Serious: Yes (Other)
  Sender: FDA-Public Use
  Company Number: JP-TEVA-2021-JP-1935778

PATIENT
  Age: 12 Year
  Sex: Female

DRUGS (5)
  1. TACROLIMUS. [Concomitant]
     Active Substance: TACROLIMUS
     Indication: IMMUNOSUPPRESSANT DRUG THERAPY
     Dosage: STARTED AT THE AGE OF 7 YEARS; STARTING DOSAGE NOT STATED
     Route: 065
  2. TACROLIMUS. [Concomitant]
     Active Substance: TACROLIMUS
     Indication: PROPHYLAXIS AGAINST TRANSPLANT REJECTION
     Dosage: DOSE BEFORE DIAGNOSIS OF IGA NEPHROPATHY AND CONTINUED AT THE SAME DOSE LATER ON
     Route: 065
  3. PREDNISOLONE. [Suspect]
     Active Substance: PREDNISOLONE
     Dosage: 65 MILLIGRAM DAILY; DOSE: 2 MG/KG/DAY; DOSE INCREASED AFTER DIAGNOSIS OF IGA NEPHROPATHY
     Route: 065
  4. PREDNISOLONE. [Suspect]
     Active Substance: PREDNISOLONE
     Indication: IMMUNOSUPPRESSANT DRUG THERAPY
     Dosage: STARTED AT THE AGE OF 7 YEARS; STARTING DOSAGE NOT STATED
     Route: 065
  5. PREDNISOLONE. [Suspect]
     Active Substance: PREDNISOLONE
     Indication: PROPHYLAXIS AGAINST TRANSPLANT REJECTION
     Dosage: 5 MILLIGRAM DAILY; DOSE BEFORE DIAGNOSIS OF IGA NEPHROPATHY
     Route: 065

REACTIONS (1)
  - Cytomegalovirus infection [Recovered/Resolved]
